FAERS Safety Report 7329526-8 (Version None)
Quarter: 2011Q1

REPORT INFORMATION
  Report Type: 
  Country: None (occurrence: None)
  Receive Date: 20110222
  Receipt Date: 20110214
  Transmission Date: 20110831
  Serious: Yes (Other)
  Sender: FDA-Public Use
  Company Number: 2011SP007103

PATIENT
  Age: 21 Year
  Sex: Female

DRUGS (1)
  1. MERCILON 28 (DESOGESTREL/ETHINYLESTRADIOL/00570801/) [Suspect]
     Indication: PRODUCT USED FOR UNKNOWN INDICATION

REACTIONS (1)
  - PULMONARY EMBOLISM [None]
